FAERS Safety Report 5991469-X (Version None)
Quarter: 2008Q4

REPORT INFORMATION
  Report Type: 
  Country: None (occurrence: None)
  Receive Date: 20081211
  Receipt Date: 20081201
  Transmission Date: 20090506
  Serious: Yes (Other)
  Sender: FDA-Public Use
  Company Number: US-SANOFI-SYNTHELABO-A03200804758

PATIENT
  Sex: Male

DRUGS (3)
  1. ACIPHEX [Concomitant]
     Indication: DRUG USE FOR UNKNOWN INDICATION
     Dosage: UNK
     Route: 065
  2. AVODART [Concomitant]
     Indication: DRUG USE FOR UNKNOWN INDICATION
     Dosage: UNK
     Route: 065
  3. UROXATRAL [Suspect]
     Indication: POLLAKIURIA
     Dosage: UNK
     Route: 048
     Dates: start: 20070101, end: 20081101

REACTIONS (10)
  - GASTROOESOPHAGEAL REFLUX DISEASE [None]
  - ILL-DEFINED DISORDER [None]
  - INCREASED UPPER AIRWAY SECRETION [None]
  - INFLUENZA [None]
  - OESOPHAGEAL PAIN [None]
  - PENILE HAEMORRHAGE [None]
  - PHARYNGEAL HAEMORRHAGE [None]
  - PNEUMONIA [None]
  - RESPIRATORY DISORDER [None]
  - THROAT IRRITATION [None]
